FAERS Safety Report 17945008 (Version 2)
Quarter: 2020Q3

REPORT INFORMATION
  Report Type: Spontaneous
  Country: US (occurrence: US)
  Receive Date: 20200625
  Receipt Date: 20200730
  Transmission Date: 20201103
  Serious: No
  Sender: FDA-Public Use
  Company Number: US-SA-2020SA161408

PATIENT

DRUGS (1)
  1. DUPIXENT [Suspect]
     Active Substance: DUPILUMAB
     Indication: DERMATITIS ATOPIC
     Dosage: 300 MG, QOW
     Route: 058
     Dates: start: 20200515

REACTIONS (7)
  - Pruritus [Not Recovered/Not Resolved]
  - Unevaluable event [Recovering/Resolving]
  - Peripheral swelling [Unknown]
  - Swelling [Recovering/Resolving]
  - Cholecystectomy [Unknown]
  - Therapeutic response decreased [Not Recovered/Not Resolved]
  - Abdominal discomfort [Recovering/Resolving]

NARRATIVE: CASE EVENT DATE: 2020
